FAERS Safety Report 9358423 (Version 1)
Quarter: 2013Q2

REPORT INFORMATION
  Report Type: Spontaneous
  Country: FR (occurrence: FR)
  Receive Date: 20130620
  Receipt Date: 20130620
  Transmission Date: 20140414
  Serious: Yes (Other)
  Sender: FDA-Public Use
  Company Number: FR-BMSGILMSD-2013-0077448

PATIENT
  Sex: Female

DRUGS (1)
  1. ATRIPLA [Suspect]
     Indication: HIV INFECTION
     Dosage: 1 DF, QD
     Dates: start: 20110510

REACTIONS (1)
  - Abortion spontaneous [Recovered/Resolved]
